FAERS Safety Report 21128378 (Version 5)
Quarter: 2022Q3

REPORT INFORMATION
  Report Type: Spontaneous
  Country: US (occurrence: US)
  Receive Date: 20220725
  Receipt Date: 20220824
  Transmission Date: 20221027
  Serious: No
  Sender: FDA-Public Use
  Company Number: US-PFIZER INC-202200996951

PATIENT
  Age: 76 Year
  Sex: Female

DRUGS (1)
  1. NICOTROL [Suspect]
     Active Substance: NICOTINE
     Indication: Smoking cessation therapy
     Dosage: AS NEEDED (4-6 CARTRIDGES A DAY, 1 INHALE EVERY 2-4 HOURS)
     Dates: start: 20220721

REACTIONS (2)
  - Cough [Unknown]
  - Malaise [Unknown]
